FAERS Safety Report 21542120 (Version 1)
Quarter: 2022Q4

REPORT INFORMATION
  Report Type: Spontaneous
  Country: KR (occurrence: KR)
  Receive Date: 20221102
  Receipt Date: 20221102
  Transmission Date: 20230113
  Serious: Yes (Other)
  Sender: FDA-Public Use
  Company Number: KR-MYLANLABS-2022M1118910

PATIENT
  Age: 76 Year
  Sex: Female

DRUGS (1)
  1. LYRICA [Suspect]
     Active Substance: PREGABALIN
     Indication: Bursitis infective
     Dosage: 1 DOSAGE FORM, QD
     Route: 065
     Dates: start: 20190709, end: 20190820

REACTIONS (6)
  - Pruritus [Recovering/Resolving]
  - Somnolence [Recovering/Resolving]
  - Vision blurred [Recovering/Resolving]
  - Muscle rigidity [Recovering/Resolving]
  - Muscle spasms [Recovering/Resolving]
  - Off label use [Unknown]

NARRATIVE: CASE EVENT DATE: 20190709
